FAERS Safety Report 19963181 (Version 1)
Quarter: 2021Q4

REPORT INFORMATION
  Report Type: Spontaneous
  Country: US (occurrence: US)
  Receive Date: 20211018
  Receipt Date: 20211018
  Transmission Date: 20220303
  Serious: No
  Sender: FDA-Public Use
  Company Number: US-MLMSERVICE-20210915-3108219-1

PATIENT
  Age: 35 Year
  Sex: Male

DRUGS (2)
  1. TRIAMCINOLONE ACETONIDE [Suspect]
     Active Substance: TRIAMCINOLONE ACETONIDE
     Indication: Groin pain
     Dosage: 1 MILLILITER, TOTAL
     Route: 065
  2. BUPIVACAINE [Concomitant]
     Active Substance: BUPIVACAINE
     Indication: Local anaesthesia
     Dosage: 4 MILLILITER, TOTAL
     Route: 065

REACTIONS (3)
  - Injection site atrophy [Recovered/Resolved]
  - Injection site discolouration [Unknown]
  - Intentional product use issue [Unknown]
